FAERS Safety Report 4696605-3 (Version None)
Quarter: 2005Q2

REPORT INFORMATION
  Report Type: 
  Country: None (occurrence: None)
  Receive Date: 20050620
  Receipt Date: 20040826
  Transmission Date: 20051028
  Serious: Yes (Hospitalization)
  Sender: FDA-Public Use
  Company Number: 200320188US

PATIENT
  Age: 39 Year
  Sex: Male
  Weight: 88.6 kg

DRUGS (2)
  1. LANTUS [Suspect]
     Indication: DIABETES MELLITUS
     Dosage: 16 U QD SC
     Route: 058
  2. NOVOLOG [Concomitant]

REACTIONS (6)
  - CHILLS [None]
  - HYPERSENSITIVITY [None]
  - PAIN [None]
  - PYREXIA [None]
  - SHOCK [None]
  - URTICARIA [None]
